FAERS Safety Report 15385482 (Version 1)
Quarter: 2018Q3

REPORT INFORMATION
  Report Type: Spontaneous
  Country: US (occurrence: US)
  Receive Date: 20180914
  Receipt Date: 20180914
  Transmission Date: 20181010
  Serious: No
  Sender: FDA-Public Use
  Company Number: US-TEVA-2018-US-952899

PATIENT
  Sex: Female

DRUGS (1)
  1. TRI?SPRINTEC [Suspect]
     Active Substance: ETHINYL ESTRADIOL\NORGESTIMATE
     Route: 065
     Dates: start: 2017

REACTIONS (1)
  - Orgasm abnormal [Unknown]

NARRATIVE: CASE EVENT DATE: 201804
